FAERS Safety Report 25192865 (Version 2)
Quarter: 2025Q2

REPORT INFORMATION
  Report Type: Report from Study
  Country: KR (occurrence: KR)
  Receive Date: 20250414
  Receipt Date: 20250422
  Transmission Date: 20250717
  Serious: Yes (Hospitalization)
  Sender: TAKEDA
  Company Number: KR-TAKEDA-2025TUS036111

PATIENT
  Age: 37 Year
  Sex: Male
  Weight: 65.6 kg

DRUGS (16)
  1. MARIBAVIR [Suspect]
     Active Substance: MARIBAVIR
     Indication: Cytomegalovirus viraemia
     Dosage: 400 MILLIGRAM, BID
     Dates: start: 20250227, end: 20250319
  2. TACROLIMUS [Concomitant]
     Active Substance: TACROLIMUS
     Indication: Heart transplant
     Dosage: 15 MILLIGRAM, QD
     Dates: start: 20250220
  3. TACROLIMUS [Concomitant]
     Active Substance: TACROLIMUS
     Dosage: 3 MILLIGRAM, QD
     Dates: start: 20250301
  4. CELLCEPT [Concomitant]
     Active Substance: MYCOPHENOLATE MOFETIL
     Indication: Heart transplant
     Dosage: UNK UNK, QD
     Dates: start: 20250227, end: 20250227
  5. CELLCEPT [Concomitant]
     Active Substance: MYCOPHENOLATE MOFETIL
     Dosage: UNK UNK, BID
     Dates: start: 20250228
  6. Solondo [Concomitant]
     Indication: Heart transplant
     Dosage: 5 MILLIGRAM, BID
     Dates: start: 20250216
  7. PANTOPRAZOLE SODIUM [Concomitant]
     Active Substance: PANTOPRAZOLE SODIUM
     Indication: Dilated cardiomyopathy
     Dosage: UNK UNK, QD
     Dates: start: 20250204
  8. LIPITOR [Concomitant]
     Active Substance: ATORVASTATIN CALCIUM
     Indication: Dilated cardiomyopathy
     Dosage: UNK UNK, QD
     Dates: start: 20250131
  9. Cavid [Concomitant]
     Indication: Heart transplant
     Dosage: UNK UNK, QD
     Dates: start: 20250101
  10. HERBALS [Concomitant]
     Active Substance: HERBALS
     Indication: Heart transplant
     Dosage: UNK UNK, BID
     Dates: start: 20250206
  11. LANTUS SOLOSTAR [Concomitant]
     Active Substance: INSULIN GLARGINE
     Indication: Diabetes mellitus
     Dosage: 6 INTERNATIONAL UNIT, QD
     Dates: start: 20250226, end: 20250303
  12. GLUCOPHAGE [Concomitant]
     Active Substance: METFORMIN HYDROCHLORIDE
     Indication: Diabetes mellitus
     Dosage: UNK UNK, BID
     Dates: start: 20250221, end: 20250305
  13. HARNAL [Concomitant]
     Active Substance: TAMSULOSIN HYDROCHLORIDE
     Indication: Bladder dysfunction
     Dosage: UNK UNK, QD
     Dates: start: 20250206
  14. TRAMADOL HYDROCHLORIDE [Concomitant]
     Active Substance: TRAMADOL HYDROCHLORIDE
     Indication: Pain
     Dosage: 50 MILLIGRAM, QID
     Dates: start: 20250115, end: 20250228
  15. LINAGLIPTIN\METFORMIN HYDROCHLORIDE [Concomitant]
     Active Substance: LINAGLIPTIN\METFORMIN HYDROCHLORIDE
     Indication: Diabetes mellitus
     Dosage: UNK UNK, BID
     Dates: start: 20250306
  16. SULFAMETHOXAZOLE\TRIMETHOPRIM [Concomitant]
     Active Substance: SULFAMETHOXAZOLE\TRIMETHOPRIM
     Indication: Heart transplant
     Dosage: UNK UNK, QD
     Dates: start: 20250109

REACTIONS (1)
  - COVID-19 [Recovered/Resolved]

NARRATIVE: CASE EVENT DATE: 20250330
